FAERS Safety Report 5267079-9 (Version None)
Quarter: 2007Q1

REPORT INFORMATION
  Report Type: 
  Country: None (occurrence: None)
  Receive Date: 20070316
  Receipt Date: 20070305
  Transmission Date: 20070707
  Serious: Yes (Other)
  Sender: FDA-Public Use
  Company Number: PHBS2007JP03548

PATIENT
  Age: 54 Year
  Sex: Male

DRUGS (6)
  1. CYCLOSPORINE [Suspect]
     Indication: CORD BLOOD TRANSPLANT THERAPY
     Route: 065
  2. METHOTREXATE [Concomitant]
     Indication: CORD BLOOD TRANSPLANT THERAPY
     Route: 065
  3. CYTOSINE ARABINOSIDE [Concomitant]
     Indication: CORD BLOOD TRANSPLANT THERAPY
  4. CYCLOPHOSPHAMIDE [Concomitant]
     Indication: CORD BLOOD TRANSPLANT THERAPY
  5. IRRADIATION [Concomitant]
     Indication: CORD BLOOD TRANSPLANT THERAPY
  6. NEUPOGEN [Concomitant]

REACTIONS (9)
  - BONE MARROW FAILURE [None]
  - COMPLICATIONS OF TRANSPLANT SURGERY [None]
  - CORD BLOOD TRANSPLANT THERAPY [None]
  - CYTOMEGALOVIRUS VIRAEMIA [None]
  - HISTIOCYTOSIS HAEMATOPHAGIC [None]
  - PANCYTOPENIA [None]
  - PYREXIA [None]
  - RASH [None]
  - SERUM FERRITIN INCREASED [None]
